FAERS Safety Report 4404899-4 (Version None)
Quarter: 2004Q3

REPORT INFORMATION
  Report Type: 
  Country: None (occurrence: None)
  Receive Date: 20040716
  Receipt Date: 20040712
  Transmission Date: 20050211
  Serious: Yes (Disabling)
  Sender: FDA-Public Use
  Company Number: HQWYE791603MAR03

PATIENT
  Sex: Female

DRUGS (4)
  1. DIMETAPP [Suspect]
     Dosage: ORAL
     Route: 048
  2. DIMETAPP [Suspect]
  3. DRISTAN EXTRA STRENGTH (ASPIRIN/CHLORPHENIRAMINE/PHENYLPROPANOLAINE, T [Suspect]
     Dosage: ORAL
     Route: 048
  4. ROBITUSSIN CF (GUAIFENESIN/DEXTROMETHORPHAN/PHENYLPROPANOLAMINE, SYRUP [Suspect]
     Dosage: ORAL
     Route: 048

REACTIONS (1)
  - CEREBROVASCULAR ACCIDENT [None]
